FAERS Safety Report 6888274-9 (Version None)
Quarter: 2010Q3

REPORT INFORMATION
  Report Type: 
  Country: None (occurrence: None)
  Receive Date: 20100730
  Receipt Date: 20100722
  Transmission Date: 20110219
  Serious: Yes (Hospitalization)
  Sender: FDA-Public Use
  Company Number: US-BRISTOL-MYERS SQUIBB COMPANY-14996177

PATIENT
  Age: 43 Year
  Sex: Male

DRUGS (2)
  1. ARIPIPRAZOLE [Suspect]
     Indication: SCHIZOPHRENIA
     Dosage: ARIPIPRAZOLR IM DEPOT D/CD ON 23FEB2010
     Route: 030
     Dates: start: 20090917, end: 20100208
  2. LORAZEPAM [Concomitant]
     Dates: start: 20100202

REACTIONS (1)
  - PSYCHOTIC DISORDER [None]
